FAERS Safety Report 12238313 (Version 1)
Quarter: 2016Q2

REPORT INFORMATION
  Report Type: Spontaneous
  Country: CN (occurrence: CN)
  Receive Date: 20160405
  Receipt Date: 20160405
  Transmission Date: 20160815
  Serious: Yes (Other)
  Sender: FDA-Public Use
  Company Number: CN-JNJFOC-20160328121

PATIENT

DRUGS (1)
  1. RISPERDAL [Suspect]
     Active Substance: RISPERIDONE
     Indication: SCHIZOPHRENIA
     Dosage: GRADUALLY INCREASED TO THE MAXIMUM DOSE OF 6MG DAILY, TAKEN IN 2 TIMES
     Route: 048

REACTIONS (16)
  - Hepatic function abnormal [Recovered/Resolved]
  - Akathisia [Recovered/Resolved]
  - Syncope [Unknown]
  - Blood pressure decreased [Unknown]
  - Tachycardia [Recovered/Resolved]
  - Extrapyramidal disorder [Recovered/Resolved]
  - Myocardial ischaemia [Unknown]
  - Somnolence [Unknown]
  - Constipation [Recovered/Resolved]
  - Dry mouth [Unknown]
  - Nasal congestion [Unknown]
  - Menstrual disorder [Unknown]
  - Electrocardiogram abnormal [Recovered/Resolved]
  - Vision blurred [Unknown]
  - Dizziness [Unknown]
  - Weight increased [Unknown]
